FAERS Safety Report 25548590 (Version 2)
Quarter: 2025Q3

REPORT INFORMATION
  Report Type: Spontaneous
  Country: US (occurrence: US)
  Receive Date: 20250714
  Receipt Date: 20250922
  Transmission Date: 20251021
  Serious: Yes (Other)
  Sender: NOVARTIS
  Company Number: US-002147023-NVSC2025US106869

PATIENT
  Age: 25 Year

DRUGS (2)
  1. KYMRIAH [Suspect]
     Active Substance: TISAGENLECLEUCEL
     Indication: Acute lymphocytic leukaemia
     Route: 042
     Dates: start: 2021, end: 2021
  2. KYMRIAH [Suspect]
     Active Substance: TISAGENLECLEUCEL
     Route: 042

REACTIONS (2)
  - Acute lymphocytic leukaemia recurrent [Unknown]
  - HIV test false positive [Unknown]
